FAERS Safety Report 5063472-8 (Version None)
Quarter: 2006Q3

REPORT INFORMATION
  Report Type: 
  Country: None (occurrence: None)
  Receive Date: 20060727
  Receipt Date: 20060718
  Transmission Date: 20061208
  Serious: Yes (Other)
  Sender: FDA-Public Use
  Company Number: GB-GLAXOSMITHKLINE-B0431458A

PATIENT
  Sex: Female

DRUGS (1)
  1. SEROXAT [Suspect]
     Dosage: 60MG THREE TIMES PER DAY
     Route: 048

REACTIONS (4)
  - ACCIDENTAL OVERDOSE [None]
  - DIZZINESS [None]
  - FATIGUE [None]
  - MYDRIASIS [None]
